FAERS Safety Report 19666723 (Version 1)
Quarter: 2021Q3

REPORT INFORMATION
  Report Type: Spontaneous
  Country: EG (occurrence: EG)
  Receive Date: 20210806
  Receipt Date: 20210806
  Transmission Date: 20211014
  Serious: Yes (Hospitalization, Other)
  Sender: FDA-Public Use
  Company Number: EG-NOVOPROD-834491

PATIENT
  Age: 58 Year
  Sex: Female

DRUGS (2)
  1. MIXTARD 30 HM PENFILL [Suspect]
     Active Substance: INSULIN HUMAN
     Indication: TYPE 1 DIABETES MELLITUS
     Dosage: (30?25?25) IU TID  BEFORE EVERY MEAL
     Route: 058
  2. CIDOPHAGE [Concomitant]
     Indication: TYPE 1 DIABETES MELLITUS
     Dosage: 1 TAB AFTER EVERY MEAL (START DATE UNKNOW STOPPED 9 MONTHS AGO)
     Route: 048

REACTIONS (4)
  - Dysphonia [Unknown]
  - Swelling [Recovered/Resolved]
  - Postoperative wound infection [Unknown]
  - Asphyxia [Recovered/Resolved]
